FAERS Safety Report 18081520 (Version 1)
Quarter: 2020Q3

REPORT INFORMATION
  Report Type: Spontaneous
  Country: US (occurrence: US)
  Receive Date: 20200728
  Receipt Date: 20200728
  Transmission Date: 20201103
  Serious: Yes (Other)
  Sender: FDA-Public Use
  Company Number: US-GLAXOSMITHKLINE-US2020139816

PATIENT
  Sex: Female

DRUGS (1)
  1. PARODONTAX [Suspect]
     Active Substance: STANNOUS FLUORIDE
     Indication: PRODUCT USED FOR UNKNOWN INDICATION
     Dosage: UNK UNK, BID

REACTIONS (7)
  - Adverse drug reaction [Unknown]
  - Lip swelling [Unknown]
  - Hypersensitivity [Unknown]
  - Oral pain [Unknown]
  - Lip pain [Unknown]
  - Mouth swelling [Unknown]
  - Lip dry [Unknown]
